FAERS Safety Report 6347455-3 (Version None)
Quarter: 2009Q3

REPORT INFORMATION
  Report Type: 
  Country: None (occurrence: None)
  Receive Date: 20090909
  Receipt Date: 20090909
  Transmission Date: 20100115
  Serious: No
  Sender: FDA-Public Use
  Company Number: None

PATIENT

DRUGS (1)
  1. ZOLADEX [Suspect]

REACTIONS (3)
  - DRUG TOLERANCE DECREASED [None]
  - HOT FLUSH [None]
  - HYPERHIDROSIS [None]
